FAERS Safety Report 23079332 (Version 2)
Quarter: 2023Q4

REPORT INFORMATION
  Report Type: Spontaneous
  Country: US (occurrence: US)
  Receive Date: 20231018
  Receipt Date: 20231204
  Transmission Date: 20240109
  Serious: Yes (Life-Threatening, Hospitalization, Other)
  Sender: FDA-Public Use
  Company Number: US-BRISTOL-MYERS SQUIBB COMPANY-2023-147767

PATIENT
  Age: 59 Year
  Sex: Female

DRUGS (1)
  1. ELIQUIS [Suspect]
     Active Substance: APIXABAN
     Indication: Deep vein thrombosis
     Route: 048

REACTIONS (8)
  - Gastrointestinal haemorrhage [Recovered/Resolved]
  - COVID-19 [Unknown]
  - Blood pressure decreased [Unknown]
  - Contusion [Unknown]
  - Loss of consciousness [Unknown]
  - Haemoglobin decreased [Unknown]
  - Pollakiuria [Unknown]
  - Postural orthostatic tachycardia syndrome [Unknown]

NARRATIVE: CASE EVENT DATE: 20230920
